FAERS Safety Report 5988498-9 (Version None)
Quarter: 2008Q4

REPORT INFORMATION
  Report Type: 
  Country: None (occurrence: None)
  Receive Date: 20081204
  Receipt Date: 20081127
  Transmission Date: 20090506
  Serious: Yes (Hospitalization, Other)
  Sender: FDA-Public Use
  Company Number: A-JP2008-22569

PATIENT
  Age: 34 Year
  Sex: Female

DRUGS (5)
  1. TRACLEER [Suspect]
     Indication: PULMONARY HYPERTENSION
     Dosage: ORAL
     Route: 048
  2. WARFARIN SODIUM [Concomitant]
  3. BERAPROST (BERAPROST) [Concomitant]
  4. DIURETICS [Concomitant]
  5. EPOPROSTENOL SODIUM [Concomitant]

REACTIONS (7)
  - CARDIAC OUTPUT DECREASED [None]
  - CENTRAL VENOUS PRESSURE INCREASED [None]
  - LARYNGEAL OEDEMA [None]
  - OFF LABEL USE [None]
  - PULMONARY HYPERTENSION [None]
  - TACHYPNOEA [None]
  - VOCAL CORD PARALYSIS [None]
